FAERS Safety Report 8173935-4 (Version None)
Quarter: 2012Q1

REPORT INFORMATION
  Report Type: 
  Country: None (occurrence: None)
  Receive Date: 20120229
  Receipt Date: 20120227
  Transmission Date: 20120608
  Serious: Yes (Other)
  Sender: FDA-Public Use
  Company Number: JP-PFIZER INC-2012050350

PATIENT

DRUGS (2)
  1. ROZEREM [Concomitant]
     Dosage: UNK
  2. ZOLOFT [Suspect]
     Dosage: UNK
     Route: 048

REACTIONS (4)
  - EXTRAPYRAMIDAL DISORDER [None]
  - TREMOR [None]
  - COGWHEEL RIGIDITY [None]
  - MUSCLE RIGIDITY [None]
